FAERS Safety Report 13766929 (Version 3)
Quarter: 2017Q3

REPORT INFORMATION
  Report Type: Report from Study
  Country: GB (occurrence: GB)
  Receive Date: 20170719
  Receipt Date: 20170926
  Transmission Date: 20171127
  Serious: Yes (Other)
  Sender: FDA-Public Use
  Company Number: GB-BRISTOL-MYERS SQUIBB COMPANY-BMS-2017-062710

PATIENT
  Sex: Female

DRUGS (1)
  1. ABATACEPT [Suspect]
     Active Substance: ABATACEPT
     Indication: RHEUMATOID ARTHRITIS
     Dosage: 125 MG, UNK
     Route: 058
     Dates: start: 20170811

REACTIONS (11)
  - Decreased appetite [Unknown]
  - Tremor [Unknown]
  - Flushing [Unknown]
  - Dysstasia [Unknown]
  - Headache [Unknown]
  - Pain [Unknown]
  - Movement disorder [Unknown]
  - Malaise [Unknown]
  - Muscle spasms [Unknown]
  - Diabetes mellitus [Unknown]
  - Diarrhoea [Unknown]
